FAERS Safety Report 4296263-6 (Version None)
Quarter: 2004Q1

REPORT INFORMATION
  Report Type: 
  Country: None (occurrence: None)
  Receive Date: 20040217
  Receipt Date: 20031001
  Transmission Date: 20041129
  Serious: No
  Sender: FDA-Public Use
  Company Number: US-GLAXOSMITHKLINE-A0428241A

PATIENT
  Age: 47 Year
  Sex: Female

DRUGS (3)
  1. LAMICTAL [Suspect]
     Dosage: 25MG TWICE PER DAY
     Route: 048
     Dates: start: 20030912
  2. WELLBUTRIN [Concomitant]
  3. SEREVENT [Concomitant]

REACTIONS (1)
  - NAUSEA [None]
